FAERS Safety Report 6814288-0 (Version None)
Quarter: 2010Q3

REPORT INFORMATION
  Report Type: 
  Country: None (occurrence: None)
  Receive Date: 20100702
  Receipt Date: 20100601
  Transmission Date: 20110219
  Serious: Yes (Disabling)
  Sender: FDA-Public Use
  Company Number: JP-SANOFI-AVENTIS-2010SA031703

PATIENT
  Age: 55 Year
  Sex: Female
  Weight: 73 kg

DRUGS (3)
  1. CLEXANE [Suspect]
     Route: 058
     Dates: start: 20100528, end: 20100608
  2. CEFMETAZON [Concomitant]
     Indication: INFECTION PROPHYLAXIS
     Dates: start: 20100525, end: 20100528
  3. FLOMOX [Concomitant]
     Indication: INFECTION PROPHYLAXIS
     Dates: start: 20100529, end: 20100604

REACTIONS (1)
  - HYPOAESTHESIA [None]
